FAERS Safety Report 9413819 (Version 1)
Quarter: 2013Q3

REPORT INFORMATION
  Report Type: Spontaneous
  Country: US (occurrence: US)
  Receive Date: 20130723
  Receipt Date: 20130723
  Transmission Date: 20140515
  Serious: Yes (Hospitalization, Other)
  Sender: FDA-Public Use
  Company Number: US-NOVOPROD-383031

PATIENT
  Age: 41 Year
  Sex: Male
  Weight: 90.7 kg

DRUGS (7)
  1. VICTOZA [Suspect]
     Indication: TYPE 1 DIABETES MELLITUS
     Dosage: 1.8 MG QD
     Route: 058
     Dates: start: 201108, end: 20130711
  2. VICTOZA [Suspect]
     Indication: OFF LABEL USE
  3. NOVOLOG [Concomitant]
     Indication: TYPE 1 DIABETES MELLITUS
     Dosage: INSULIN PUMP
     Route: 058
  4. SIMVASTATIN [Concomitant]
     Indication: PROPHYLAXIS
     Dosage: 40 MG QD
     Route: 048
  5. ASPIRIN [Concomitant]
     Indication: PROPHYLAXIS
     Dosage: 81 MG QD
     Route: 048
  6. VITAMIN D                          /00107901/ [Concomitant]
     Indication: PROPHYLAXIS
     Dosage: ORAL DAILY
     Route: 048
  7. ALBUTEROL                          /00139501/ [Concomitant]
     Indication: ASTHMA
     Dosage: AS NEEDED FOR ASTHMA
     Route: 055

REACTIONS (3)
  - Gastroenteritis viral [Unknown]
  - Pancreatitis [Recovered/Resolved]
  - Off label use [Recovered/Resolved]
